FAERS Safety Report 4683616-7 (Version None)
Quarter: 2005Q2

REPORT INFORMATION
  Report Type: 
  Country: None (occurrence: None)
  Receive Date: 20050602
  Receipt Date: 20050310
  Transmission Date: 20051028
  Serious: No
  Sender: FDA-Public Use
  Company Number: 200510452BWH

PATIENT
  Age: 46 Year
  Sex: Male

DRUGS (4)
  1. LEVITRA [Suspect]
     Indication: ERECTILE DYSFUNCTION
     Dates: start: 20040101
  2. DILANTIN [Concomitant]
  3. INSULIN [Concomitant]
  4. PHENOBARBITAL TAB [Concomitant]

REACTIONS (1)
  - ERECTILE DYSFUNCTION [None]
